FAERS Safety Report 6399900-5 (Version None)
Quarter: 2009Q4

REPORT INFORMATION
  Report Type: 
  Country: None (occurrence: None)
  Receive Date: 20091014
  Receipt Date: 20091006
  Transmission Date: 20100525
  Serious: Yes (Other)
  Sender: FDA-Public Use
  Company Number: US-AVENTIS-200918986US

PATIENT
  Sex: Female

DRUGS (1)
  1. AMARYL [Suspect]
     Indication: DIABETES MELLITUS
     Dosage: DOSE: 1 TABLET
     Dates: start: 20090701

REACTIONS (5)
  - FALL [None]
  - FEELING ABNORMAL [None]
  - HEAD INJURY [None]
  - NIGHTMARE [None]
  - WRIST FRACTURE [None]
